FAERS Safety Report 23199816 (Version 3)
Quarter: 2024Q3

REPORT INFORMATION
  Report Type: Spontaneous
  Country: US (occurrence: US)
  Receive Date: 20231117
  Receipt Date: 20240909
  Transmission Date: 20241016
  Serious: No
  Sender: PFIZER
  Company Number: US-PFIZER INC-PV202300186078

PATIENT
  Age: 74 Year
  Sex: Female
  Weight: 79.365 kg

DRUGS (4)
  1. IBRANCE [Suspect]
     Active Substance: PALBOCICLIB
     Indication: Breast cancer female
     Dosage: 100 MG, CYCLIC, 1 DAILY FOR 21 DAYS THEN 7 DAYS OFF
     Route: 048
     Dates: start: 20230427
  2. XGEVA [Concomitant]
     Active Substance: DENOSUMAB
     Dosage: UNK SHOT
     Dates: start: 202305
  3. FULVESTRANT [Concomitant]
     Active Substance: FULVESTRANT
     Dosage: UNK
     Dates: start: 202310
  4. ARIMIDEX [Concomitant]
     Active Substance: ANASTROZOLE
     Dosage: UNK
     Dates: start: 202304, end: 202310

REACTIONS (1)
  - Cerebral disorder [Recovered/Resolved]
